FAERS Safety Report 20108162 (Version 1)
Quarter: 2021Q4

REPORT INFORMATION
  Report Type: Report from Study
  Country: CA (occurrence: CA)
  Receive Date: 20211124
  Receipt Date: 20211124
  Transmission Date: 20220303
  Serious: Yes (Hospitalization)
  Sender: FDA-Public Use
  Company Number: CA-MYLANLABS-2021M1085656

PATIENT
  Age: 58 Year
  Sex: Male

DRUGS (1)
  1. HULIO [Suspect]
     Active Substance: ADALIMUMAB-FKJP
     Indication: Psoriatic arthropathy
     Dosage: UNK, QW (QWEEKLY INJECTIONS)
     Dates: start: 20211029

REACTIONS (1)
  - Groin pain [Unknown]

NARRATIVE: CASE EVENT DATE: 20211111
